FAERS Safety Report 22030705 (Version 1)
Quarter: 2023Q1

REPORT INFORMATION
  Report Type: Spontaneous
  Country: US (occurrence: US)
  Receive Date: 20230223
  Receipt Date: 20230223
  Transmission Date: 20230417
  Serious: No
  Sender: FDA-Public Use
  Company Number: US-TAKEDA-2023TUS016928

PATIENT
  Sex: Female
  Weight: 57 kg

DRUGS (5)
  1. ADDERALL XR [Suspect]
     Active Substance: AMPHETAMINE ASPARTATE\AMPHETAMINE SULFATE\DEXTROAMPHETAMINE SACCHARATE\DEXTROAMPHETAMINE SULFATE
     Indication: Attention deficit hyperactivity disorder
     Route: 065
  2. ADDERALL [Suspect]
     Active Substance: AMPHETAMINE ASPARTATE\AMPHETAMINE SULFATE\DEXTROAMPHETAMINE SACCHARATE\DEXTROAMPHETAMINE SULFATE
     Indication: Product used for unknown indication
     Dosage: UNK
     Route: 065
  3. VYVANSE [Suspect]
     Active Substance: LISDEXAMFETAMINE DIMESYLATE
     Indication: Product used for unknown indication
     Route: 065
  4. WELLBUTRIN [Suspect]
     Active Substance: BUPROPION HYDROCHLORIDE
     Indication: Product used for unknown indication
     Dosage: 100 MILLIGRAM
     Route: 065
  5. XANAX [Concomitant]
     Active Substance: ALPRAZOLAM

REACTIONS (14)
  - Product availability issue [Unknown]
  - Condition aggravated [Unknown]
  - Memory impairment [Unknown]
  - Inability to afford medication [Unknown]
  - General physical health deterioration [Unknown]
  - Mental disorder [Unknown]
  - Sleep disorder [Unknown]
  - Job dissatisfaction [Unknown]
  - Disturbance in attention [Unknown]
  - Anxiety [Unknown]
  - Feeling abnormal [Unknown]
  - Pain [Unknown]
  - Nightmare [Unknown]
  - Product use issue [Unknown]
